FAERS Safety Report 21519044 (Version 2)
Quarter: 2022Q4

REPORT INFORMATION
  Report Type: Spontaneous
  Country: US (occurrence: US)
  Receive Date: 20221028
  Receipt Date: 20221103
  Transmission Date: 20230113
  Serious: Yes (Life-Threatening, Hospitalization, Other)
  Sender: FDA-Public Use
  Company Number: US-CIPLA LTD.-2022US06326

PATIENT
  Age: 54 Year
  Sex: Female

DRUGS (2)
  1. LEVETIRACETAM [Suspect]
     Active Substance: LEVETIRACETAM
     Dosage: 45,000 MG, UNK (60 TABLETS OF LEVETIRACETAM 750 MG), 60 DF, 1 TOTAL
     Route: 048
  2. AMITRIPTYLINE [Suspect]
     Active Substance: AMITRIPTYLINE
     Dosage: 2,500 MG, UNK (25 TABLETS OF AMITRIPTYLINE 100 MG), 25 DF, 1 TOTAL
     Route: 048

REACTIONS (3)
  - Unresponsive to stimuli [Unknown]
  - Intentional overdose [Unknown]
  - Depressed level of consciousness [Unknown]
